FAERS Safety Report 8219261-6 (Version None)
Quarter: 2012Q1

REPORT INFORMATION
  Report Type: 
  Country: None (occurrence: None)
  Receive Date: 20120319
  Receipt Date: 20120306
  Transmission Date: 20120608
  Serious: Yes (Hospitalization, Other)
  Sender: FDA-Public Use
  Company Number: DE-ELI_LILLY_AND_COMPANY-DE201203001732

PATIENT
  Age: 61 Year
  Sex: Male

DRUGS (12)
  1. ZYPREXA [Suspect]
     Dosage: 15 MG, UNK
     Dates: start: 20110710, end: 20110713
  2. CYMBALTA [Concomitant]
     Dosage: 30 MG, UNK
     Route: 048
     Dates: start: 20110713
  3. LORAZEPAM [Concomitant]
     Dosage: 3 MG, UNK
     Route: 048
     Dates: start: 20110711, end: 20110714
  4. LORAZEPAM [Concomitant]
     Dosage: UNK
     Route: 048
     Dates: start: 20110721, end: 20110723
  5. CYMBALTA [Concomitant]
     Dosage: 60 MG, UNK
     Route: 048
     Dates: start: 20110708, end: 20110712
  6. LORAZEPAM [Concomitant]
     Dosage: 4 MG, UNK
     Route: 048
     Dates: start: 20110707, end: 20110710
  7. ZYPREXA [Suspect]
     Dosage: 30 MG, UNK
     Route: 048
  8. VALDOXAN [Concomitant]
  9. LORAZEPAM [Concomitant]
     Dosage: 2.5 MG, UNK
     Route: 048
     Dates: start: 20110715, end: 20110720
  10. ZYPREXA [Suspect]
     Dosage: 20 MG, UNK
     Route: 048
     Dates: end: 20110706
  11. ZYPREXA [Suspect]
     Dosage: 10 MG, UNK
     Route: 048
     Dates: start: 20110707, end: 20110709
  12. CYMBALTA [Concomitant]
     Dosage: 120 MG, UNK
     Route: 048
     Dates: start: 20110707, end: 20110707

REACTIONS (6)
  - SCHIZOPHRENIA [None]
  - NEUROLEPTIC MALIGNANT SYNDROME [None]
  - DELIRIUM [None]
  - DRUG INTERACTION [None]
  - DRUG LEVEL INCREASED [None]
  - OVERDOSE [None]
